FAERS Safety Report 8483565-2 (Version None)
Quarter: 2012Q3

REPORT INFORMATION
  Report Type: 
  Country: None (occurrence: None)
  Receive Date: 20120702
  Receipt Date: 20120629
  Transmission Date: 20120928
  Serious: Yes (Hospitalization, Disabling, Other)
  Sender: FDA-Public Use
  Company Number: US-MERCK-1203USA03311

PATIENT
  Age: 49 Year
  Sex: Female

DRUGS (6)
  1. FOSAMAX [Suspect]
     Route: 048
     Dates: start: 20080101, end: 20100101
  2. ALENDRONATE SODIUM [Suspect]
     Indication: OSTEOPOROSIS
     Route: 065
  3. FOSAMAX [Suspect]
     Route: 048
     Dates: start: 20080101, end: 20100101
  4. FOSAMAX [Suspect]
     Indication: OSTEOPOROSIS
     Route: 048
     Dates: start: 20040101, end: 20080101
  5. ALENDRONATE SODIUM [Suspect]
     Indication: OSTEOPENIA
     Route: 065
  6. FOSAMAX [Suspect]
     Indication: OSTEOPENIA
     Route: 048
     Dates: start: 20040101, end: 20080101

REACTIONS (50)
  - APPENDIX DISORDER [None]
  - RUBELLA [None]
  - GASTROOESOPHAGEAL REFLUX DISEASE [None]
  - FIBROMYALGIA [None]
  - ENDOMETRIAL DISORDER [None]
  - TEMPOROMANDIBULAR JOINT SYNDROME [None]
  - HEART RATE IRREGULAR [None]
  - VITAMIN D DEFICIENCY [None]
  - BURSITIS [None]
  - EXOSTOSIS [None]
  - MYALGIA [None]
  - ROAD TRAFFIC ACCIDENT [None]
  - FEMUR FRACTURE [None]
  - JAW DISORDER [None]
  - ARTHROPATHY [None]
  - CARDIAC MURMUR [None]
  - SLEEP DISORDER [None]
  - MIGRAINE [None]
  - CALCIUM DEFICIENCY [None]
  - ABDOMINAL PAIN LOWER [None]
  - HAEMORRHOIDS [None]
  - FATIGUE [None]
  - THORACIC OUTLET SYNDROME [None]
  - HYPERTENSION [None]
  - CYSTITIS [None]
  - GALLBLADDER DISORDER [None]
  - DEPRESSION [None]
  - TONSILLAR DISORDER [None]
  - ASTHMA [None]
  - BONE DENSITY DECREASED [None]
  - BONE DISORDER [None]
  - EMOTIONAL DISTRESS [None]
  - MULTIPLE FRACTURES [None]
  - COCCYDYNIA [None]
  - TOOTH DISORDER [None]
  - STRESS FRACTURE [None]
  - PREMENSTRUAL SYNDROME [None]
  - OSTEOPOROSIS [None]
  - SINUS DISORDER [None]
  - SPINAL DISORDER [None]
  - PAIN [None]
  - POST-TRAUMATIC NECK SYNDROME [None]
  - DRUG HYPERSENSITIVITY [None]
  - ROTATOR CUFF SYNDROME [None]
  - BLOOD CHOLESTEROL INCREASED [None]
  - ADVERSE EVENT [None]
  - CUBITAL TUNNEL SYNDROME [None]
  - INTERVERTEBRAL DISC DEGENERATION [None]
  - BLADDER DISORDER [None]
  - JOINT INJURY [None]
